FAERS Safety Report 21057071 (Version 2)
Quarter: 2022Q3

REPORT INFORMATION
  Report Type: Spontaneous
  Country: US (occurrence: US)
  Receive Date: 20220708
  Receipt Date: 20220709
  Transmission Date: 20221027
  Serious: No
  Sender: FDA-Public Use
  Company Number: US-JNJFOC-20220700502

PATIENT
  Age: 43 Year
  Sex: Male

DRUGS (1)
  1. VISINE RED EYE HYDRATING COMFORT EYE DROPS [Suspect]
     Active Substance: POLYETHYLENE GLYCOL 400\TETRAHYDROZOLINE HYDROCHLORIDE
     Indication: Eyelid disorder
     Dosage: 1 DROP ONCE A DAY?PRODUCT START DATE: APPROX 17-JUNE-2022
     Route: 047
     Dates: start: 202206

REACTIONS (4)
  - Eye pruritus [Not Recovered/Not Resolved]
  - Vision blurred [Not Recovered/Not Resolved]
  - Poor quality product administered [Not Recovered/Not Resolved]
  - Product quality issue [Unknown]

NARRATIVE: CASE EVENT DATE: 20220601
